FAERS Safety Report 9535391 (Version 1)
Quarter: 2013Q3

REPORT INFORMATION
  Report Type: Spontaneous
  Country: US (occurrence: US)
  Receive Date: 20130918
  Receipt Date: 20130918
  Transmission Date: 20140515
  Serious: No
  Sender: FDA-Public Use
  Company Number: US-PURDUE-USA-2012-0086934

PATIENT
  Sex: Male

DRUGS (1)
  1. DILAUDID INJECTION [Suspect]
     Indication: SURGERY
     Dosage: UNK

REACTIONS (4)
  - Pruritus generalised [Unknown]
  - Skin warm [Unknown]
  - Paraesthesia [Unknown]
  - Drug hypersensitivity [Unknown]
